FAERS Safety Report 6425622-8 (Version None)
Quarter: 2009Q4

REPORT INFORMATION
  Report Type: 
  Country: None (occurrence: None)
  Receive Date: 20091103
  Receipt Date: 20091019
  Transmission Date: 20100525
  Serious: Yes (Other)
  Sender: FDA-Public Use
  Company Number: JP-GENENTECH-293285

PATIENT
  Age: 76 Year
  Sex: Female

DRUGS (3)
  1. XOLAIR [Suspect]
     Indication: ASTHMA
     Dosage: UNK
     Route: 058
     Dates: start: 20090610
  2. XOLAIR [Suspect]
     Dosage: UNK
     Route: 065
     Dates: start: 20090930
  3. XOLAIR [Suspect]
     Dosage: UNK
     Route: 065
     Dates: start: 20091003

REACTIONS (1)
  - LARYNGOSPASM [None]
